FAERS Safety Report 6756934-6 (Version None)
Quarter: 2010Q2

REPORT INFORMATION
  Report Type: 
  Country: None (occurrence: None)
  Receive Date: 20100603
  Receipt Date: 20100603
  Transmission Date: 20101027
  Serious: Yes (Hospitalization)
  Sender: FDA-Public Use
  Company Number: None

PATIENT
  Age: 59 Year
  Sex: Male
  Weight: 64 kg

DRUGS (2)
  1. OXYCODONE 2.5/APAP 500 [Suspect]
     Dosage: 30 MG QID PO
     Route: 048
     Dates: start: 20061101
  2. FENTANYL [Suspect]
     Dosage: 100 MCG OTHER TOP
     Route: 061
     Dates: start: 20070101

REACTIONS (3)
  - MENTAL STATUS CHANGES [None]
  - MIOSIS [None]
  - RESPIRATORY DEPRESSION [None]
